FAERS Safety Report 14432689 (Version 9)
Quarter: 2018Q2

REPORT INFORMATION
  Report Type: Report from Study
  Country: BE (occurrence: BE)
  Receive Date: 20180124
  Receipt Date: 20180619
  Transmission Date: 20180711
  Serious: Yes (Other)
  Sender: FDA-Public Use
  Company Number: BE-PFIZER INC-2018025322

PATIENT
  Age: 38 Year
  Sex: Male

DRUGS (5)
  1. LEUCOVORIN /00566701/ [Suspect]
     Active Substance: LEUCOVORIN
     Indication: COLORECTAL CANCER METASTATIC
     Dosage: 1 DF, CYCLIC (EVERY TWO WEEKS)
     Route: 042
     Dates: start: 20170703
  2. IRINOTECAN HCL [Suspect]
     Active Substance: IRINOTECAN HYDROCHLORIDE
     Indication: COLORECTAL CANCER METASTATIC
     Dosage: 1 DF, CYCLIC (EVERY TWO WEEKS)
     Route: 042
     Dates: start: 20170703
  3. SOLU-MEDROL [Suspect]
     Active Substance: METHYLPREDNISOLONE SODIUM SUCCINATE
     Indication: COLORECTAL CANCER METASTATIC
     Dosage: UNK
  4. FLUOROURACIL. [Suspect]
     Active Substance: FLUOROURACIL
     Indication: COLORECTAL CANCER METASTATIC
     Dosage: 1 DF, CYCLIC (EVERY TWO WEEKS)
     Route: 042
     Dates: start: 20170703
  5. AVASTIN [Suspect]
     Active Substance: BEVACIZUMAB
     Indication: COLORECTAL CANCER METASTATIC
     Dosage: 1 DF, CYCLIC (EVERY TWO WEEKS)
     Route: 042
     Dates: start: 20170703

REACTIONS (15)
  - Oropharyngeal pain [Not Recovered/Not Resolved]
  - Osteonecrosis [Not Recovered/Not Resolved]
  - Dyspnoea [Unknown]
  - Hypersensitivity [Recovered/Resolved]
  - Diarrhoea [Recovered/Resolved]
  - Mouth ulceration [Unknown]
  - Vena cava thrombosis [Not Recovered/Not Resolved]
  - Dry mouth [Not Recovered/Not Resolved]
  - Lacrimation increased [Not Recovered/Not Resolved]
  - Nausea [Not Recovered/Not Resolved]
  - Stomatitis [Not Recovered/Not Resolved]
  - Vomiting [Not Recovered/Not Resolved]
  - Dermatitis [Recovered/Resolved]
  - Pain of skin [Not Recovered/Not Resolved]
  - Decreased appetite [Not Recovered/Not Resolved]

NARRATIVE: CASE EVENT DATE: 20170703
